FAERS Safety Report 6102142-1 (Version None)
Quarter: 2009Q1

REPORT INFORMATION
  Report Type: 
  Country: None (occurrence: None)
  Receive Date: 20090304
  Receipt Date: 20090225
  Transmission Date: 20090719
  Serious: Yes (Hospitalization)
  Sender: FDA-Public Use
  Company Number: US-MERCK-0902USA04355

PATIENT
  Age: 80 Year
  Sex: Female

DRUGS (6)
  1. COZAAR [Suspect]
     Indication: HYPERTENSION
     Route: 048
  2. COZAAR [Suspect]
     Route: 048
  3. COZAAR [Suspect]
     Route: 048
  4. COZAAR [Suspect]
     Route: 048
  5. XANAX [Concomitant]
     Route: 065
  6. PRANDIN [Concomitant]
     Route: 065

REACTIONS (4)
  - BLOOD PRESSURE FLUCTUATION [None]
  - BLOOD PRESSURE INADEQUATELY CONTROLLED [None]
  - INFECTION [None]
  - OVERDOSE [None]
